FAERS Safety Report 21188011 (Version 1)
Quarter: 2022Q3

REPORT INFORMATION
  Report Type: Spontaneous
  Country: CA (occurrence: CA)
  Receive Date: 20220809
  Receipt Date: 20220809
  Transmission Date: 20221026
  Serious: Yes (Hospitalization, Other)
  Sender: FDA-Public Use
  Company Number: CA-SUN PHARMACEUTICAL INDUSTRIES LTD-2022R1-347671

PATIENT
  Age: 38 Year
  Sex: Female

DRUGS (2)
  1. ACETAMINOPHEN\OXYCODONE HYDROCHLORIDE [Suspect]
     Active Substance: ACETAMINOPHEN\OXYCODONE HYDROCHLORIDE
     Indication: Product used for unknown indication
     Dosage: 2.5 TABLET
     Route: 045
  2. BUPRENORPHINE\NALOXONE [Suspect]
     Active Substance: BUPRENORPHINE\NALOXONE
     Indication: Product used for unknown indication
     Dosage: 2 DOSES OF 2 MG BUPRENORPHINE/0.5 MG
     Route: 065

REACTIONS (12)
  - Exposure during pregnancy [Unknown]
  - Dependence [Unknown]
  - Withdrawal syndrome [Unknown]
  - Amniotic cavity infection [Unknown]
  - Premature delivery [Unknown]
  - Drug use disorder [Unknown]
  - Dysphoria [Unknown]
  - Myalgia [Unknown]
  - Restlessness [Unknown]
  - Nausea [Unknown]
  - Wrong technique in product usage process [Unknown]
  - Incorrect route of product administration [Unknown]
